FAERS Safety Report 8598362-7 (Version None)
Quarter: 2012Q3

REPORT INFORMATION
  Report Type: 
  Country: None (occurrence: None)
  Receive Date: 20120816
  Receipt Date: 20120807
  Transmission Date: 20120928
  Serious: Yes (Other)
  Sender: FDA-Public Use
  Company Number: US-JNJFOC-20120803729

PATIENT
  Sex: Male

DRUGS (1)
  1. STELARA [Suspect]
     Indication: PSORIASIS
     Route: 058
     Dates: end: 20120101

REACTIONS (4)
  - LOWER RESPIRATORY TRACT INFECTION [None]
  - INFLUENZA [None]
  - DRUG DOSE OMISSION [None]
  - HERNIA [None]
